FAERS Safety Report 11264528 (Version 1)
Quarter: 2015Q3

REPORT INFORMATION
  Report Type: Spontaneous
  Country: US (occurrence: None)
  Receive Date: 20150710
  Receipt Date: 20150710
  Transmission Date: 20151125
  Serious: No
  Sender: FDA-Public Use
  Company Number: None

PATIENT
  Age: 60 Year
  Sex: Female

DRUGS (1)
  1. ORENCIA [Suspect]
     Active Substance: ABATACEPT
     Indication: RHEUMATOID ARTHRITIS
     Dosage: 125MG, WEEKLY, SUBCUTANEOUSLY
     Route: 058
     Dates: start: 20121113, end: 20150709

REACTIONS (4)
  - Dry skin [None]
  - Skin fissures [None]
  - Rash [None]
  - Skin exfoliation [None]

NARRATIVE: CASE EVENT DATE: 201411
